FAERS Safety Report 18153752 (Version 1)
Quarter: 2020Q3

REPORT INFORMATION
  Report Type: Report from Study
  Country: MX (occurrence: MX)
  Receive Date: 20200816
  Receipt Date: 20200816
  Transmission Date: 20201103
  Serious: Yes (Death)
  Sender: FDA-Public Use
  Company Number: NVSC2020MX225368

PATIENT
  Age: 54 Year
  Sex: Male

DRUGS (1)
  1. EXFORGE HCT [Suspect]
     Active Substance: AMLODIPINE BESYLATE\HYDROCHLOROTHIAZIDE\VALSARTAN
     Indication: PRODUCT USED FOR UNKNOWN INDICATION
     Dosage: 1 DF, QD, STARTS ABOUT 1 YEAR AGO.
     Route: 048

REACTIONS (1)
  - Pulmonary fibrosis [Fatal]

NARRATIVE: CASE EVENT DATE: 20200705
